FAERS Safety Report 9114617 (Version 1)
Quarter: 2013Q1

REPORT INFORMATION
  Report Type: Spontaneous
  Country: IT (occurrence: IT)
  Receive Date: 20130128
  Receipt Date: 20130128
  Transmission Date: 20140127
  Serious: Yes (Other)
  Sender: FDA-Public Use
  Company Number: IT-MYLANLABS-2013S1001099

PATIENT
  Age: 60 Year
  Sex: Male

DRUGS (1)
  1. CLOPIDOGREL [Suspect]
     Indication: AORTIC STENT INSERTION
     Route: 048

REACTIONS (3)
  - Blood pressure fluctuation [Not Recovered/Not Resolved]
  - Malaise [Not Recovered/Not Resolved]
  - Pruritus [Not Recovered/Not Resolved]
